FAERS Safety Report 13227677 (Version 1)
Quarter: 2017Q1

REPORT INFORMATION
  Report Type: Spontaneous
  Country: GB (occurrence: GB)
  Receive Date: 20170213
  Receipt Date: 20170213
  Transmission Date: 20170428
  Serious: Yes (Hospitalization)
  Sender: FDA-Public Use
  Company Number: GB-OTSUKA-2017_002729

PATIENT
  Sex: Female

DRUGS (2)
  1. ABILIFY MAINTENA [Suspect]
     Active Substance: ARIPIPRAZOLE
     Indication: SCHIZOPHRENIA
     Dosage: 400 MG, QM (ONCE MONTHLY)
     Route: 065
     Dates: start: 2015
  2. ABILIFY MAINTENA [Suspect]
     Active Substance: ARIPIPRAZOLE
     Dosage: 300 MG, QM (ONCE MONTHLY)
     Route: 065

REACTIONS (4)
  - Urinary tract infection [Unknown]
  - H1N1 influenza [Unknown]
  - Hypothermia [Unknown]
  - Lower respiratory tract infection [Unknown]
